FAERS Safety Report 7958154-6 (Version None)
Quarter: 2011Q4

REPORT INFORMATION
  Report Type: 
  Country: None (occurrence: None)
  Receive Date: 20111205
  Receipt Date: 20111205
  Transmission Date: 20120403
  Serious: Yes (Hospitalization)
  Sender: FDA-Public Use
  Company Number: PHHO2010DE03008

PATIENT
  Sex: Male
  Weight: 62 kg

DRUGS (2)
  1. AFINITOR [Suspect]
     Indication: METASTATIC GASTRIC CANCER
     Dosage: 10 MG, QD
     Route: 048
     Dates: start: 20100210, end: 20100503
  2. AFINITOR [Suspect]
     Dosage: 5 MG, UNK
     Route: 048
     Dates: start: 20100511, end: 20100525

REACTIONS (2)
  - FAECALOMA [None]
  - GASTROINTESTINAL PAIN [None]
